FAERS Safety Report 10483080 (Version 1)
Quarter: 2014Q3

REPORT INFORMATION
  Report Type: Spontaneous
  Country: FR (occurrence: FR)
  Receive Date: 20140930
  Receipt Date: 20140930
  Transmission Date: 20150326
  Serious: Yes (Hospitalization)
  Sender: FDA-Public Use
  Company Number: FR-ASTRAZENECA-2014SE71066

PATIENT
  Age: 7794 Day
  Sex: Female

DRUGS (13)
  1. ARIXTRA [Suspect]
     Active Substance: FONDAPARINUX SODIUM
     Route: 058
     Dates: start: 20130117, end: 20130121
  2. COUMADINE [Concomitant]
     Active Substance: WARFARIN SODIUM
     Dates: end: 201212
  3. DOLIPRANE [Concomitant]
     Active Substance: ACETAMINOPHEN
     Indication: PAIN
     Dates: start: 20130115, end: 20130122
  4. TETRAZEPAM [Suspect]
     Active Substance: TETRAZEPAM
     Route: 048
     Dates: start: 20130117, end: 20130121
  5. ACTILYSE [Concomitant]
     Active Substance: ALTEPLASE
     Dates: start: 20130116, end: 20130116
  6. ACUPAN [Concomitant]
     Active Substance: NEFOPAM HYDROCHLORIDE
     Dates: start: 201301, end: 20130119
  7. KARDEGIC [Concomitant]
     Active Substance: ASPIRIN LYSINE
     Dates: start: 20130118
  8. INEXIUM [Suspect]
     Active Substance: ESOMEPRAZOLE
     Route: 048
     Dates: start: 20130117, end: 20130119
  9. SKENAN [Suspect]
     Active Substance: MORPHINE SULFATE
     Indication: PAIN
     Route: 048
     Dates: start: 20130117, end: 20130123
  10. LOVENOX [Suspect]
     Active Substance: ENOXAPARIN SODIUM
     Route: 058
     Dates: start: 20130115, end: 20130117
  11. CONTRAMAL [Suspect]
     Active Substance: TRAMADOL HYDROCHLORIDE
     Indication: PAIN
     Route: 048
     Dates: start: 20130115, end: 20130117
  12. SKENAN [Suspect]
     Active Substance: MORPHINE SULFATE
     Indication: PAIN
     Dosage: ACTISKENAN
     Route: 048
     Dates: start: 20130117, end: 20130123
  13. BIPROFENID [Suspect]
     Active Substance: KETOPROFEN
     Indication: PAIN
     Route: 048
     Dates: start: 20130117, end: 20130119

REACTIONS (2)
  - Hepatocellular injury [Recovering/Resolving]
  - Cholestasis [Recovering/Resolving]

NARRATIVE: CASE EVENT DATE: 20130119
